FAERS Safety Report 6575912-3 (Version None)
Quarter: 2010Q1

REPORT INFORMATION
  Report Type: 
  Country: None (occurrence: None)
  Receive Date: 20100209
  Receipt Date: 20100204
  Transmission Date: 20100710
  Serious: Yes (Disabling)
  Sender: FDA-Public Use
  Company Number: JP-BAUSCH-2010BL000449

PATIENT
  Age: 42 Year
  Sex: Male

DRUGS (4)
  1. FLUOCINOLONE ACETONIDE [Suspect]
     Indication: UVEITIS
     Route: 047
     Dates: start: 20061017
  2. RINDERON [Concomitant]
     Route: 047
  3. NEORAL [Concomitant]
     Route: 048
  4. HYALEIN [Concomitant]
     Route: 047

REACTIONS (1)
  - CORNEAL PERFORATION [None]
